FAERS Safety Report 15948082 (Version 2)
Quarter: 2019Q1

REPORT INFORMATION
  Report Type: Spontaneous
  Country: PL (occurrence: PL)
  Receive Date: 20190211
  Receipt Date: 20190219
  Transmission Date: 20190417
  Serious: Yes (Hospitalization)
  Sender: FDA-Public Use
  Company Number: PL-TEVA-2013-14237

PATIENT
  Age: 60 Year
  Sex: Male

DRUGS (3)
  1. ASPIRIN (UNKNOWN) [Suspect]
     Active Substance: ASPIRIN
     Indication: PRODUCT USED FOR UNKNOWN INDICATION
     Dosage: 75 MILLIGRAM DAILY;
     Route: 048
     Dates: start: 20100521
  2. ENOXAPARIN [Concomitant]
     Active Substance: ENOXAPARIN
     Indication: MYOCARDIAL INFARCTION
     Route: 065
     Dates: start: 20100521, end: 20100528
  3. CLOPIDOGREL (UNKNOWN) [Suspect]
     Active Substance: CLOPIDOGREL BISULFATE
     Indication: PRODUCT USED FOR UNKNOWN INDICATION
     Dosage: 75 MILLIGRAM DAILY;
     Route: 065
     Dates: start: 20100521

REACTIONS (2)
  - Myocardial infarction [Recovered/Resolved]
  - Post procedural haemorrhage [Recovered/Resolved]

NARRATIVE: CASE EVENT DATE: 20100521
